FAERS Safety Report 19180149 (Version 1)
Quarter: 2021Q2

REPORT INFORMATION
  Report Type: Spontaneous
  Country: CA (occurrence: CA)
  Receive Date: 20210426
  Receipt Date: 20210426
  Transmission Date: 20210717
  Serious: Yes (Other)
  Sender: FDA-Public Use
  Company Number: NVSC2021CA090802

PATIENT
  Age: 55 Year
  Sex: Female

DRUGS (2)
  1. TOBRAMYCIN. [Concomitant]
     Active Substance: TOBRAMYCIN
     Indication: PRODUCT USED FOR UNKNOWN INDICATION
     Dosage: UNK
     Route: 065
  2. SANDOZ TRAVOPROST [Suspect]
     Active Substance: TRAVOPROST
     Indication: GLAUCOMA
     Dosage: 1 DRP, QD
     Route: 061

REACTIONS (8)
  - Reaction to preservatives [Recovering/Resolving]
  - Eye pain [Recovering/Resolving]
  - Eyelid margin crusting [Recovering/Resolving]
  - Dry eye [Recovering/Resolving]
  - Hypertrichosis [Recovering/Resolving]
  - Foreign body sensation in eyes [Recovering/Resolving]
  - Eye injury [Recovering/Resolving]
  - Eyelash changes [Recovering/Resolving]
